FAERS Safety Report 6435547-X (Version None)
Quarter: 2009Q4

REPORT INFORMATION
  Report Type: 
  Country: None (occurrence: None)
  Receive Date: 20091111
  Receipt Date: 20091105
  Transmission Date: 20100525
  Serious: Yes (Other)
  Sender: FDA-Public Use
  Company Number: CA-WYE-G04832909

PATIENT
  Age: 28 Year
  Sex: Male

DRUGS (1)
  1. VENLAFAXINE HCL [Suspect]
     Route: 048
     Dates: start: 20090301

REACTIONS (2)
  - BLOOD PROLACTIN INCREASED [None]
  - PSYCHOTIC DISORDER [None]
